FAERS Safety Report 14014196 (Version 2)
Quarter: 2017Q4

REPORT INFORMATION
  Report Type: Report from Study
  Country: None (occurrence: JP)
  Receive Date: 20170927
  Receipt Date: 20171030
  Transmission Date: 20180321
  Serious: Yes (Hospitalization)
  Sender: FDA-Public Use
  Company Number: JP-ABBVIE-17K-087-2025972-00

PATIENT
  Age: 76 Year
  Sex: Male
  Weight: 43 kg

DRUGS (3)
  1. MENESIT [Concomitant]
     Active Substance: CARBIDOPA\LEVODOPA
  2. MENESIT [Concomitant]
     Active Substance: CARBIDOPA\LEVODOPA
     Indication: PARKINSON^S DISEASE
     Dosage: THE AMOUNT OF LEVODOPA CONVERTED TO 16-HOUR DOSE DURING DAYTIME WAS 650 MG.
     Route: 048
     Dates: start: 200908
  3. DUODOPA [Suspect]
     Active Substance: CARBIDOPA\LEVODOPA
     Indication: PRODUCT USED FOR UNKNOWN INDICATION
     Dosage: MD: 12 ML, CD: 3 ML/HR X 15 HR
     Route: 050
     Dates: start: 20170525, end: 20170527

REACTIONS (1)
  - Bezoar [Recovered/Resolved]

NARRATIVE: CASE EVENT DATE: 20170527
